FAERS Safety Report 19101637 (Version 1)
Quarter: 2021Q2

REPORT INFORMATION
  Report Type: Spontaneous
  Country: US (occurrence: US)
  Receive Date: 20210407
  Receipt Date: 20210407
  Transmission Date: 20210717
  Serious: Yes (Disabling)
  Sender: FDA-Public Use
  Company Number: None

PATIENT
  Age: 36 Year
  Sex: Female
  Weight: 72 kg

DRUGS (6)
  1. OZEMPIC [Suspect]
     Active Substance: SEMAGLUTIDE
     Indication: TYPE 1 DIABETES MELLITUS
     Dosage: ?          OTHER FREQUENCY:WEEKLY;?
     Route: 058
  2. HUMALOG [Concomitant]
     Active Substance: INSULIN LISPRO
  3. FLONASE [Concomitant]
     Active Substance: FLUTICASONE PROPIONATE
  4. TRESIBA [Concomitant]
     Active Substance: INSULIN DEGLUDEC
  5. LEVOTHYROXINE. [Concomitant]
     Active Substance: LEVOTHYROXINE
  6. OZEMPIC [Suspect]
     Active Substance: SEMAGLUTIDE
     Indication: BODY MASS INDEX INCREASED
     Dosage: ?          OTHER FREQUENCY:WEEKLY;?
     Route: 058

REACTIONS (9)
  - Syncope [None]
  - Autonomic nervous system imbalance [None]
  - Blood pressure fluctuation [None]
  - Dizziness [None]
  - Hyperhidrosis [None]
  - Blood glucose increased [None]
  - Therapy change [None]
  - Off label use [None]
  - Concussion [None]

NARRATIVE: CASE EVENT DATE: 20200811
